FAERS Safety Report 23601557 (Version 2)
Quarter: 2024Q1

REPORT INFORMATION
  Report Type: Spontaneous
  Country: IT (occurrence: IT)
  Receive Date: 20240306
  Receipt Date: 20240313
  Transmission Date: 20240410
  Serious: Yes (Hospitalization, Other)
  Sender: FDA-Public Use
  Company Number: IT-009507513-2403ITA000647

PATIENT
  Age: 40 Year
  Sex: Female

DRUGS (1)
  1. PEMBROLIZUMAB [Suspect]
     Active Substance: PEMBROLIZUMAB
     Indication: Triple negative breast cancer
     Dosage: NEOADJUVANT TREATMENT

REACTIONS (3)
  - Meningitis aseptic [Recovering/Resolving]
  - Syncope [Recovering/Resolving]
  - Headache [Recovering/Resolving]
